FAERS Safety Report 5295988-3 (Version None)
Quarter: 2007Q2

REPORT INFORMATION
  Report Type: 
  Country: None (occurrence: None)
  Receive Date: 20070413
  Receipt Date: 20070402
  Transmission Date: 20071010
  Serious: Yes (Hospitalization)
  Sender: FDA-Public Use
  Company Number: CA-ELI_LILLY_AND_COMPANY-CA200703005254

PATIENT
  Age: 45 Year
  Sex: Female

DRUGS (8)
  1. FORTEO [Suspect]
     Indication: HYPOPARATHYROIDISM
     Dosage: 20 UG, DAILY (1/D)
     Route: 058
     Dates: start: 20061001
  2. CALCIUM [Concomitant]
     Dosage: 500 MG, 2/D
     Route: 048
     Dates: end: 20070301
  3. CALCIUM [Concomitant]
     Dosage: 4000 MG, DAILY (1/D)
     Route: 048
     Dates: start: 20070301
  4. VITAMIN D [Concomitant]
  5. THYROID THERAPY [Concomitant]
  6. ROCALTROL [Concomitant]
     Route: 048
     Dates: end: 20070301
  7. ROCALTROL [Concomitant]
     Dosage: UNK, DAILY (1/D)
     Route: 048
     Dates: start: 20070301
  8. DIURETICS [Concomitant]

REACTIONS (6)
  - ARTHRALGIA [None]
  - BLOOD CALCIUM DECREASED [None]
  - BLOOD CALCIUM INCREASED [None]
  - MUSCULOSKELETAL PAIN [None]
  - NON-CARDIAC CHEST PAIN [None]
  - PAIN IN EXTREMITY [None]
